FAERS Safety Report 10090332 (Version 1)
Quarter: 2014Q2

REPORT INFORMATION
  Report Type: Report from Study
  Country: AU (occurrence: AU)
  Receive Date: 20140421
  Receipt Date: 20140421
  Transmission Date: 20141212
  Serious: Yes (Death, Other)
  Sender: FDA-Public Use
  Company Number: AU-SA-2014SA044793

PATIENT
  Age: 82 Year
  Sex: Male

DRUGS (1)
  1. LANTUS [Suspect]
     Indication: PRODUCT USED FOR UNKNOWN INDICATION
     Dosage: DOSE: 6(UNITS UNSPECIFIED)
     Route: 065
     Dates: start: 20140304

REACTIONS (2)
  - Death [Fatal]
  - Cerebrovascular accident [Unknown]
